FAERS Safety Report 20690005 (Version 1)
Quarter: 2022Q2

REPORT INFORMATION
  Report Type: Spontaneous
  Country: FR (occurrence: FR)
  Receive Date: 20220408
  Receipt Date: 20220408
  Transmission Date: 20220721
  Serious: Yes (Death, Other)
  Sender: FDA-Public Use
  Company Number: FR-AMGEN-FRASP2022034697

PATIENT
  Age: 37 Year
  Sex: Male

DRUGS (2)
  1. CINACALCET HYDROCHLORIDE [Suspect]
     Active Substance: CINACALCET HYDROCHLORIDE
     Indication: Hyperparathyroidism
     Dosage: UNK
     Route: 065
  2. PAMIDRONATE [Concomitant]
     Active Substance: PAMIDRONATE DISODIUM
     Indication: Hypercalcaemia
     Dosage: UNK
     Route: 065

REACTIONS (21)
  - Cholangitis [Fatal]
  - Sepsis [Fatal]
  - Cachexia [Fatal]
  - Angiotensin converting enzyme increased [Unknown]
  - C-reactive protein increased [Unknown]
  - Deep vein thrombosis [Unknown]
  - Hypercalcaemia [Unknown]
  - Spinal fracture [Unknown]
  - Venous thrombosis [Unknown]
  - Vitamin D increased [Unknown]
  - Pulmonary embolism [Unknown]
  - Pancytopenia [Unknown]
  - Multisystem inflammatory syndrome [Unknown]
  - Hypoalbuminaemia [Unknown]
  - Transplant failure [Unknown]
  - Spondylitis [Unknown]
  - Arteriovenous fistula thrombosis [Unknown]
  - Pain [Unknown]
  - Arthritis [Unknown]
  - Tendon rupture [Unknown]
  - Sacroiliitis [Unknown]
